FAERS Safety Report 15473458 (Version 1)
Quarter: 2018Q4

REPORT INFORMATION
  Report Type: Spontaneous
  Country: US (occurrence: US)
  Receive Date: 20181008
  Receipt Date: 20181008
  Transmission Date: 20190205
  Serious: No
  Sender: FDA-Public Use
  Company Number: US-BRISTOL-MYERS SQUIBB COMPANY-BMS-2018-093646

PATIENT
  Sex: Female

DRUGS (4)
  1. HYDREA [Suspect]
     Active Substance: HYDROXYUREA
     Indication: PRODUCT USED FOR UNKNOWN INDICATION
     Route: 065
  2. BENADRYL [Concomitant]
     Active Substance: DIPHENHYDRAMINE HYDROCHLORIDE
     Indication: PRODUCT USED FOR UNKNOWN INDICATION
     Route: 065
  3. JAKAFI [Suspect]
     Active Substance: RUXOLITINIB
     Indication: POLYCYTHAEMIA VERA
     Dosage: 15 MG, BID
     Route: 048
     Dates: start: 201705
  4. ASPIRIN                            /00002701/ [Concomitant]
     Active Substance: ASPIRIN
     Indication: PRODUCT USED FOR UNKNOWN INDICATION
     Route: 065

REACTIONS (12)
  - Blood iron decreased [Unknown]
  - Tongue ulceration [Unknown]
  - Palmar erythema [Not Recovered/Not Resolved]
  - White blood cell count increased [Unknown]
  - Red blood cell count increased [Unknown]
  - Tongue discolouration [Unknown]
  - Platelet count increased [Unknown]
  - Gingival ulceration [Unknown]
  - Pruritus [Unknown]
  - Haematocrit increased [Unknown]
  - Tongue haemorrhage [Unknown]
  - Dizziness [Unknown]
